FAERS Safety Report 8140466-7 (Version None)
Quarter: 2012Q1

REPORT INFORMATION
  Report Type: 
  Country: None (occurrence: None)
  Receive Date: 20120216
  Receipt Date: 20120213
  Transmission Date: 20120608
  Serious: Yes (Other)
  Sender: FDA-Public Use
  Company Number: US-PFIZER INC-2012038749

PATIENT
  Sex: Female

DRUGS (9)
  1. LYRICA [Suspect]
     Indication: FIBROMYALGIA
     Dosage: 50 MG, 2X/DAY
     Route: 048
     Dates: end: 20111101
  2. LYRICA [Suspect]
     Indication: NECK PAIN
     Dosage: 50 MG, 3X/DAY
     Route: 048
     Dates: start: 20111101, end: 20120212
  3. HYDROCODONE [Concomitant]
  4. HYDROCODONE [Concomitant]
     Indication: BONE PAIN
  5. HYDROCODONE [Concomitant]
     Indication: OSTEOARTHRITIS
     Dosage: UNK
  6. HYDROCODONE [Concomitant]
     Indication: ARTHRALGIA
  7. LYRICA [Suspect]
     Indication: ARTHRALGIA
  8. LYRICA [Suspect]
     Indication: MUSCULOSKELETAL PAIN
  9. LYRICA [Suspect]
     Indication: PAIN IN EXTREMITY

REACTIONS (11)
  - MALAISE [None]
  - OSTEOARTHRITIS [None]
  - BONE PAIN [None]
  - NECK PAIN [None]
  - ABDOMINAL DISCOMFORT [None]
  - ANXIETY [None]
  - NERVOUSNESS [None]
  - NAUSEA [None]
  - MUSCULOSKELETAL PAIN [None]
  - HEPATITIS C [None]
  - ARTHRALGIA [None]
